FAERS Safety Report 10151049 (Version 1)
Quarter: 2014Q2

REPORT INFORMATION
  Report Type: Spontaneous
  Country: US (occurrence: US)
  Receive Date: 20140502
  Receipt Date: 20140502
  Transmission Date: 20141212
  Serious: No
  Sender: FDA-Public Use
  Company Number: US-ASTRAZENECA-2014SE19464

PATIENT
  Sex: Female

DRUGS (2)
  1. PRILOSEC OTC [Suspect]
     Indication: MULTIPLE ALLERGIES
     Route: 048
     Dates: start: 20140312, end: 20140316
  2. PRILOSEC OTC [Suspect]
     Indication: NASAL DISORDER
     Route: 048
     Dates: start: 20140312, end: 20140316

REACTIONS (2)
  - Crying [Unknown]
  - Depression [Unknown]
